FAERS Safety Report 5863794-4 (Version None)
Quarter: 2008Q3

REPORT INFORMATION
  Report Type: 
  Country: None (occurrence: None)
  Receive Date: 20080827
  Receipt Date: 20080731
  Transmission Date: 20090109
  Serious: No
  Sender: FDA-Public Use
  Company Number: ADE#08-122

PATIENT
  Age: 62 Year
  Sex: Male
  Weight: 90.7194 kg

DRUGS (2)
  1. TRAMADOL HCL [Suspect]
     Indication: ARTHRITIS
     Dosage: SEE IMAGE
     Dates: start: 20071001
  2. BLOOD PRESSURE PILLS [Concomitant]

REACTIONS (1)
  - DIPLOPIA [None]
